FAERS Safety Report 6725629-7 (Version None)
Quarter: 2010Q2

REPORT INFORMATION
  Report Type: 
  Country: None (occurrence: None)
  Receive Date: 20100514
  Receipt Date: 20100510
  Transmission Date: 20101027
  Serious: Yes (Other)
  Sender: FDA-Public Use
  Company Number: US-SANOFI-AVENTIS-2010SA025187

PATIENT
  Age: 78 Year
  Sex: Male
  Weight: 77 kg

DRUGS (12)
  1. DOCETAXEL [Suspect]
     Indication: PROSTATE CANCER
     Route: 041
     Dates: start: 20090907, end: 20090907
  2. DOCETAXEL [Suspect]
     Route: 041
     Dates: start: 20100218, end: 20100218
  3. DOCETAXEL [Suspect]
     Route: 041
     Dates: start: 20090625, end: 20090625
  4. BLINDED THERAPY [Suspect]
     Indication: PROSTATE CANCER
     Route: 048
     Dates: start: 20090907, end: 20100311
  5. PREDNISONE TAB [Suspect]
     Indication: PROSTATE CANCER
     Route: 048
     Dates: start: 20090907, end: 20100311
  6. DEXAMETHASONE [Suspect]
     Indication: PREMEDICATION
  7. ASPIRIN [Concomitant]
  8. CIALIS [Concomitant]
  9. TAMSULOSIN HCL [Concomitant]
  10. GLUCOPHAGE [Concomitant]
  11. LEVOTHYROXINE SODIUM [Concomitant]
  12. LISINOPRIL [Concomitant]

REACTIONS (3)
  - DIZZINESS [None]
  - MUSCULAR WEAKNESS [None]
  - PARKINSON'S DISEASE [None]
